APPROVED DRUG PRODUCT: MULPLETA
Active Ingredient: LUSUTROMBOPAG
Strength: 3MG
Dosage Form/Route: TABLET;ORAL
Application: N210923 | Product #001
Applicant: VANCOCIN ITALIA SRL
Approved: Jul 31, 2018 | RLD: Yes | RS: Yes | Type: RX

PATENTS:
Patent 9427402 | Expires: Sep 29, 2031
Patent 8889722 | Expires: Jul 29, 2028
Patent 8530668 | Expires: Jan 21, 2030